FAERS Safety Report 15704368 (Version 1)
Quarter: 2018Q4

REPORT INFORMATION
  Report Type: Spontaneous
  Country: US (occurrence: US)
  Receive Date: 20181210
  Receipt Date: 20181210
  Transmission Date: 20190205
  Serious: Yes (Other)
  Sender: FDA-Public Use
  Company Number: US-ADIENNEP-2018AD000567

PATIENT
  Age: 13 Year
  Sex: Male

DRUGS (7)
  1. CARBOPLATIN. [Suspect]
     Active Substance: CARBOPLATIN
     Indication: STEM CELL TRANSPLANT
  2. MELPHALAN. [Suspect]
     Active Substance: MELPHALAN
     Indication: STEM CELL TRANSPLANT
  3. THIOTEPA. [Suspect]
     Active Substance: THIOTEPA
     Indication: STEM CELL TRANSPLANT
  4. ETOPOSIDE. [Suspect]
     Active Substance: ETOPOSIDE
     Indication: STEM CELL TRANSPLANT
  5. DINUTUXIMAB [Suspect]
     Active Substance: DINUTUXIMAB
  6. CYCLOPHOSPHAMIDE. [Suspect]
     Active Substance: CYCLOPHOSPHAMIDE
     Indication: STEM CELL TRANSPLANT
  7. ISOTRETINOIN. [Suspect]
     Active Substance: ISOTRETINOIN

REACTIONS (2)
  - Thrombotic microangiopathy [Unknown]
  - Pneumonia legionella [Unknown]
